FAERS Safety Report 17431662 (Version 1)
Quarter: 2020Q1

REPORT INFORMATION
  Report Type: Spontaneous
  Country: US (occurrence: US)
  Receive Date: 20200218
  Receipt Date: 20200218
  Transmission Date: 20200409
  Serious: Yes (Other)
  Sender: FDA-Public Use
  Company Number: NVSC2020US041954

PATIENT
  Age: 68 Year
  Sex: Male

DRUGS (1)
  1. SECUKINUMAB. [Suspect]
     Active Substance: SECUKINUMAB
     Indication: ANKYLOSING SPONDYLITIS
     Route: 065

REACTIONS (4)
  - Bowel movement irregularity [Unknown]
  - Inflammatory bowel disease [Unknown]
  - Pyrexia [Unknown]
  - Abnormal loss of weight [Unknown]
